FAERS Safety Report 12637812 (Version 1)
Quarter: 2016Q3

REPORT INFORMATION
  Report Type: Spontaneous
  Country: CN (occurrence: CN)
  Receive Date: 20160809
  Receipt Date: 20160809
  Transmission Date: 20161109
  Serious: Yes (Hospitalization)
  Sender: FDA-Public Use
  Company Number: CN-ELI_LILLY_AND_COMPANY-CN201608001603

PATIENT
  Age: 70 Year
  Sex: Female

DRUGS (1)
  1. HUMULIN R [Suspect]
     Active Substance: INSULIN HUMAN
     Indication: DIABETES MELLITUS
     Dosage: UNK, UNKNOWN
     Route: 058
     Dates: start: 2008

REACTIONS (5)
  - Blood glucose increased [Unknown]
  - Dizziness [Unknown]
  - Influenza [Unknown]
  - Diabetic complication [Unknown]
  - Hypoglycaemia [Unknown]
